FAERS Safety Report 5162864-6 (Version None)
Quarter: 2006Q4

REPORT INFORMATION
  Report Type: 
  Country: None (occurrence: None)
  Receive Date: 20061201
  Receipt Date: 20061121
  Transmission Date: 20070319
  Serious: Yes (Life-Threatening)
  Sender: FDA-Public Use
  Company Number: FR-GLAXOSMITHKLINE-B0447505A

PATIENT
  Age: 58 Year
  Sex: Male
  Weight: 78 kg

DRUGS (6)
  1. ZANTAC [Suspect]
     Route: 065
     Dates: start: 20060915, end: 20060915
  2. TRANDATE [Suspect]
     Route: 065
     Dates: start: 20060907, end: 20060917
  3. CIPROFLOXACIN [Suspect]
     Dosage: 750MG PER DAY
     Route: 042
     Dates: start: 20060825, end: 20060914
  4. OMEPRAZOLE [Suspect]
     Route: 065
     Dates: start: 20060705, end: 20060912
  5. VFEND [Suspect]
     Route: 065
     Dates: start: 20060727, end: 20060911
  6. VALGANCICLOVIR HCL [Suspect]
     Route: 065
     Dates: start: 20060816, end: 20060911

REACTIONS (1)
  - BONE MARROW FAILURE [None]
